FAERS Safety Report 18272495 (Version 1)
Quarter: 2020Q3

REPORT INFORMATION
  Report Type: Spontaneous
  Country: FR (occurrence: FR)
  Receive Date: 20200916
  Receipt Date: 20200916
  Transmission Date: 20201103
  Serious: Yes (Other)
  Sender: FDA-Public Use
  Company Number: FR-ACCORD-201214

PATIENT
  Age: 31 Year
  Sex: Female

DRUGS (4)
  1. OXALIPLATIN. [Suspect]
     Active Substance: OXALIPLATIN
     Indication: COLON CANCER
     Dosage: (C1 03/08/2020 ? C2 25/08/2020) ? (21?DAY CYCLES)
     Route: 041
     Dates: start: 20200825
  2. ZOPHREN [Concomitant]
     Active Substance: ONDANSETRON
     Route: 048
  3. XELODA [Concomitant]
     Active Substance: CAPECITABINE
     Indication: COLON CANCER
     Dosage: 1500MG 2X / D ? D2 TO D15 ? (21?DAY CYCLES)
     Route: 048
     Dates: start: 20200728
  4. PRIMPERAN [Concomitant]
     Active Substance: METOCLOPRAMIDE HYDROCHLORIDE
     Route: 048

REACTIONS (1)
  - Immediate post-injection reaction [Recovered/Resolved]

NARRATIVE: CASE EVENT DATE: 20200825
